FAERS Safety Report 18238887 (Version 1)
Quarter: 2020Q3

REPORT INFORMATION
  Report Type: Spontaneous
  Country: DE (occurrence: DE)
  Receive Date: 20200907
  Receipt Date: 20200907
  Transmission Date: 20201103
  Serious: Yes (Hospitalization)
  Sender: FDA-Public Use
  Company Number: DE-JNJFOC-20200838581

PATIENT
  Age: 83 Year
  Sex: Female

DRUGS (8)
  1. EISEN(II)?GLYCIN?SULFAT?KOMPLEX [Concomitant]
     Active Substance: FERROUS GLYCINE SULFATE
     Dosage: 50 MG, QD
     Route: 048
  2. NALOXONE W/OXYCODONE [Concomitant]
     Active Substance: NALOXONE HYDROCHLORIDE\OXYCODONE HYDROCHLORIDE
     Dosage: 1 DF, HS
     Route: 048
  3. TORASEMID [Concomitant]
     Active Substance: TORSEMIDE
     Dosage: 50 MG, OM
     Route: 048
  4. METAMIZOLE [Concomitant]
     Active Substance: METAMIZOLE
     Dosage: 500 MG, BID
     Route: 048
  5. CANDESARTAN. [Concomitant]
     Active Substance: CANDESARTAN
     Dosage: 8 MG, BID
     Route: 048
  6. PRAMIPEXOLE. [Concomitant]
     Active Substance: PRAMIPEXOLE
     Dosage: 0.35 MG, HS
  7. VITAMIN D                          /00318501/ [Suspect]
     Active Substance: CHOLECALCIFEROL
     Dosage: 20000 IU, OW
     Route: 048
  8. RIVAROXABAN [Suspect]
     Active Substance: RIVAROXABAN
     Indication: PRODUCT USED FOR UNKNOWN INDICATION
     Dosage: NK MG, 1?0?0?0
     Route: 048

REACTIONS (5)
  - Underdose [Unknown]
  - Dyspnoea [Unknown]
  - Pulmonary artery thrombosis [Unknown]
  - Cough [Unknown]
  - Productive cough [Unknown]
